FAERS Safety Report 9601855 (Version 1)
Quarter: 2013Q4

REPORT INFORMATION
  Report Type: Spontaneous
  Country: US (occurrence: US)
  Receive Date: 20131007
  Receipt Date: 20131007
  Transmission Date: 20140711
  Serious: Yes (Other)
  Sender: FDA-Public Use
  Company Number: US-JNJFOC-20131001413

PATIENT
  Sex: Female

DRUGS (1)
  1. DOXIL [Suspect]
     Indication: BREAST CANCER
     Route: 042
     Dates: start: 201307, end: 201308

REACTIONS (8)
  - Cholecystitis [Not Recovered/Not Resolved]
  - Nausea [Unknown]
  - Abdominal discomfort [Unknown]
  - Eating disorder [Unknown]
  - Malaise [Unknown]
  - Pyrexia [Not Recovered/Not Resolved]
  - Adverse drug reaction [Unknown]
  - Abdominal pain [Not Recovered/Not Resolved]
